FAERS Safety Report 4900161-1 (Version None)
Quarter: 2006Q1

REPORT INFORMATION
  Report Type: 
  Country: None (occurrence: None)
  Receive Date: 20060203
  Receipt Date: 20050209
  Transmission Date: 20060701
  Serious: No
  Sender: FDA-Public Use
  Company Number: US-GLAXOSMITHKLINE-A0544755A

PATIENT
  Age: 82 Year
  Sex: Male

DRUGS (3)
  1. ARIXTRA [Suspect]
     Dosage: 2.5MG PER DAY
     Route: 058
     Dates: start: 20050131
  2. MORPHINE [Concomitant]
  3. TYLENOL [Concomitant]

REACTIONS (4)
  - CHROMATURIA [None]
  - OEDEMA [None]
  - OEDEMA PERIPHERAL [None]
  - URINE OUTPUT DECREASED [None]
